FAERS Safety Report 21165798 (Version 1)
Quarter: 2022Q3

REPORT INFORMATION
  Report Type: Spontaneous
  Country: US (occurrence: US)
  Receive Date: 20220803
  Receipt Date: 20220803
  Transmission Date: 20221027
  Serious: No
  Sender: FDA-Public Use
  Company Number: US-BRISTOL-MYERS SQUIBB COMPANY-2022-083990

PATIENT
  Age: 52 Year
  Sex: Female
  Weight: 134.2 kg

DRUGS (1)
  1. REVLIMID [Suspect]
     Active Substance: LENALIDOMIDE
     Indication: Plasma cell myeloma in remission
     Dosage: FREQUENCY: FOR 21DAYS
     Route: 048
     Dates: end: 20220718

REACTIONS (1)
  - Hepatic enzyme increased [Recovered/Resolved]
